FAERS Safety Report 14747204 (Version 1)
Quarter: 2018Q2

REPORT INFORMATION
  Report Type: Spontaneous
  Country: US (occurrence: US)
  Receive Date: 20180411
  Receipt Date: 20180411
  Transmission Date: 20180711
  Serious: No
  Sender: FDA-Public Use
  Company Number: US-ALLERGAN-1734050US

PATIENT
  Sex: Female

DRUGS (1)
  1. RISEDRONATE SODIUM - BP [Suspect]
     Active Substance: RISEDRONATE SODIUM
     Indication: OSTEOPENIA
     Dosage: 1 TABLET
     Route: 065
     Dates: start: 20170606

REACTIONS (6)
  - Diarrhoea [Recovered/Resolved]
  - Abdominal pain [Recovered/Resolved]
  - Back pain [Recovered/Resolved]
  - Chest pain [Recovered/Resolved]
  - Neck pain [Recovered/Resolved]
  - Arthralgia [Recovered/Resolved]

NARRATIVE: CASE EVENT DATE: 201706
